FAERS Safety Report 9960953 (Version 1)
Quarter: 2014Q1

REPORT INFORMATION
  Report Type: Report from Study
  Country: US (occurrence: US)
  Receive Date: 20140305
  Receipt Date: 20140305
  Transmission Date: 20141002
  Serious: No
  Sender: FDA-Public Use
  Company Number: US-ABBVIE-13P-163-1108559-00

PATIENT
  Age: 85 Year
  Sex: Female
  Weight: 43.13 kg

DRUGS (6)
  1. HUMIRA [Suspect]
     Indication: RHEUMATOID ARTHRITIS
     Dates: start: 20130603
  2. IBUPROFEN [Concomitant]
     Indication: PAIN
  3. METOPROLOL [Concomitant]
     Indication: HYPERTENSION
  4. RESTASIS [Concomitant]
     Indication: DRY EYE
  5. TYLENOL [Concomitant]
     Indication: PAIN
  6. VITAMIN D [Concomitant]
     Indication: VITAMIN SUPPLEMENTATION

REACTIONS (1)
  - Arthritis [Not Recovered/Not Resolved]
